FAERS Safety Report 20998815 (Version 2)
Quarter: 2022Q3

REPORT INFORMATION
  Report Type: Spontaneous
  Country: SK (occurrence: None)
  Receive Date: 20220623
  Receipt Date: 20220718
  Transmission Date: 20221027
  Serious: Yes (Other)
  Sender: FDA-Public Use
  Company Number: SK-ROCHE-3119174

PATIENT
  Age: 46 Year
  Sex: Female

DRUGS (11)
  1. OCREVUS [Suspect]
     Active Substance: OCRELIZUMAB
     Indication: Multiple sclerosis
     Dosage: LAST TIME SHE RECEIVED OCREVUS WAS IN NOV/2022?SUBSEQUENT DOSES ON 04/DEC/2020, 20/MAY/2021, 12/NOV/
     Route: 042
     Dates: start: 20201120
  2. BETAFERON [Concomitant]
     Active Substance: INTERFERON BETA-1B
     Dates: start: 201506
  3. WARFARIN [Concomitant]
     Active Substance: WARFARIN
  4. LYRICA [Concomitant]
     Active Substance: PREGABALIN
  5. BACLOFEN [Concomitant]
     Active Substance: BACLOFEN
  6. ARTHROTEC [Concomitant]
     Active Substance: DICLOFENAC SODIUM\MISOPROSTOL
  7. LEVOTHYROXINE [Concomitant]
     Active Substance: LEVOTHYROXINE
  8. GABAPENTIN [Concomitant]
     Active Substance: GABAPENTIN
  9. ATORVASTATIN [Concomitant]
     Active Substance: ATORVASTATIN
  10. CONTROLOC [Concomitant]
     Active Substance: PANTOPRAZOLE SODIUM
  11. NADROPARIN CALCIUM [Concomitant]
     Active Substance: NADROPARIN CALCIUM

REACTIONS (3)
  - Embolic stroke [Unknown]
  - Carotid artery occlusion [Unknown]
  - Cerebrovascular accident [Unknown]

NARRATIVE: CASE EVENT DATE: 20220504
